FAERS Safety Report 5347518-5 (Version None)
Quarter: 2007Q2

REPORT INFORMATION
  Report Type: 
  Country: None (occurrence: None)
  Receive Date: 20070606
  Receipt Date: 20070529
  Transmission Date: 20071010
  Serious: Yes (Death)
  Sender: FDA-Public Use
  Company Number: CH-NOVOPROD-264016

PATIENT
  Age: 54 Year
  Sex: Male

DRUGS (8)
  1. NOVOSEVEN [Suspect]
     Indication: POST PROCEDURAL HAEMORRHAGE
     Dosage: 4 X 70 UG/KG
     Route: 042
  2. NOVOSEVEN [Suspect]
     Dosage: 35 UG / KG EVERY 4 HOURS
  3. METFORMIN HCL [Concomitant]
     Indication: DIABETES MELLITUS
  4. ENALAPRIL + HIDROCLOROTIAZIDA [Concomitant]
  5. PIPERACILLIN W/TAZOBACTAM [Concomitant]
     Indication: SEPSIS
  6. AMIKACIN [Concomitant]
     Indication: SEPSIS
  7. FLUCONAZOLE [Concomitant]
     Indication: CANDIDIASIS
  8. MEROPENEM [Concomitant]

REACTIONS (4)
  - DRUG INEFFECTIVE [None]
  - MULTI-ORGAN FAILURE [None]
  - SEPTIC SHOCK [None]
  - SHOCK HAEMORRHAGIC [None]
